FAERS Safety Report 6318097-0 (Version None)
Quarter: 2009Q3

REPORT INFORMATION
  Report Type: 
  Country: None (occurrence: None)
  Receive Date: 20090821
  Receipt Date: 20090818
  Transmission Date: 20100115
  Serious: Yes (Death, Life-Threatening, Hospitalization)
  Sender: FDA-Public Use
  Company Number: US-EISAI INC.-E7273-00075-CLI-US

PATIENT
  Sex: Male
  Weight: 89 kg

DRUGS (6)
  1. TARGRETIN [Suspect]
     Indication: THYROID CANCER
     Route: 048
     Dates: start: 20090424, end: 20090527
  2. FISH OIL CAPSULES [Concomitant]
     Route: 048
     Dates: start: 20090409, end: 20090527
  3. SYNTHROID [Concomitant]
     Indication: HORMONE REPLACEMENT THERAPY
     Route: 048
     Dates: start: 19890401
  4. SYNTAX [Concomitant]
     Indication: REFLUX GASTRITIS
     Dosage: 1 PILL
     Route: 048
     Dates: start: 20081030
  5. MULTI-VITAMINS [Concomitant]
     Indication: SUPPLEMENTATION THERAPY
     Dosage: 1 PILL
     Route: 048
     Dates: start: 19890101
  6. ADVIL [Concomitant]
     Indication: HEADACHE
     Route: 048
     Dates: start: 20090424

REACTIONS (9)
  - DELIRIUM [None]
  - DISEASE PROGRESSION [None]
  - GENERAL PHYSICAL HEALTH DETERIORATION [None]
  - HAEMOPTYSIS [None]
  - MALIGNANT NEOPLASM PROGRESSION [None]
  - METASTASES TO LIVER [None]
  - PAIN [None]
  - PULMONARY MASS [None]
  - THYROID CANCER METASTATIC [None]
